FAERS Safety Report 4845367-5 (Version None)
Quarter: 2005Q4

REPORT INFORMATION
  Report Type: 
  Country: None (occurrence: None)
  Receive Date: 20051125
  Receipt Date: 20051109
  Transmission Date: 20060501
  Serious: Yes (Other)
  Sender: FDA-Public Use
  Company Number: 9396

PATIENT
  Age: 75 Year
  Sex: Male

DRUGS (2)
  1. METHOTREXATE [Suspect]
     Indication: RHEUMATOID ARTHRITIS
     Dates: end: 20030101
  2. SULFASALAZINE [Concomitant]

REACTIONS (19)
  - BLOOD ALBUMIN DECREASED [None]
  - BLOOD ALKALINE PHOSPHATASE INCREASED [None]
  - BLOOD LACTATE DEHYDROGENASE INCREASED [None]
  - BLOOD PRESSURE INCREASED [None]
  - BLOOD UREA INCREASED [None]
  - DRUG INEFFECTIVE [None]
  - HAEMOGLOBIN DECREASED [None]
  - JOINT DISLOCATION [None]
  - JOINT SWELLING [None]
  - LEUKOPENIA [None]
  - LYMPHOCYTE STIMULATION TEST POSITIVE [None]
  - PERICARDIAL DISEASE [None]
  - PERICARDIAL EFFUSION [None]
  - PERICARDITIS [None]
  - PITTING OEDEMA [None]
  - PLEURAL FIBROSIS [None]
  - PLEURISY [None]
  - RHEUMATOID LUNG [None]
  - SERUM FERRITIN INCREASED [None]
